FAERS Safety Report 12670327 (Version 1)
Quarter: 2016Q3

REPORT INFORMATION
  Report Type: Report from Study
  Country: JP (occurrence: JP)
  Receive Date: 20160822
  Receipt Date: 20160822
  Transmission Date: 20161109
  Serious: Yes (Other)
  Sender: FDA-Public Use
  Company Number: JP-ROCHE-1240997

PATIENT

DRUGS (2)
  1. TS-1 [Suspect]
     Active Substance: GIMERACIL\OTERACIL\TEGAFUR
     Indication: COLORECTAL CANCER METASTATIC
     Dosage: DOSE: 80-120 MG/BODY SURFACE AREA: FROM DAY 1 TO DAY 28, FOLLOWED BY A 14-DAY REST PERIOD.
     Route: 048
  2. BEVACIZUMAB [Suspect]
     Active Substance: BEVACIZUMAB
     Indication: COLORECTAL CANCER METASTATIC
     Dosage: ON DAYS 1, 15, AND 29 WAS REPEATED UNTIL THE DISCONTINUATION CRITERIA OF THE PROTOCOL TREATMENT WERE
     Route: 042

REACTIONS (13)
  - Diarrhoea [Unknown]
  - Skin exfoliation [Unknown]
  - Mucosal inflammation [Unknown]
  - Decreased appetite [Unknown]
  - Blood bilirubin abnormal [Unknown]
  - Alanine aminotransferase abnormal [Unknown]
  - Fatigue [Unknown]
  - Rash [Unknown]
  - Aspartate aminotransferase abnormal [Unknown]
  - Nausea [Unknown]
  - Haemoglobin decreased [Unknown]
  - Neutropenia [Unknown]
  - Stomatitis [Unknown]
